FAERS Safety Report 11964970 (Version 1)
Quarter: 2016Q1

REPORT INFORMATION
  Report Type: Spontaneous
  Country: CA (occurrence: None)
  Receive Date: 20160125
  Receipt Date: 20160125
  Transmission Date: 20160526
  Serious: No
  Sender: FDA-Public Use
  Company Number: None

PATIENT
  Age: 32 Year
  Sex: Female
  Weight: 45.36 kg

DRUGS (3)
  1. NIX [Suspect]
     Active Substance: PERMETHRIN
     Indication: ACARODERMATITIS
     Dosage: 1 TUBE, AS NEEDED, APPLIED TO A SURFACE, USUALLY THE SKIN
     Dates: start: 20160120, end: 20160121
  2. VENTOLIN [Concomitant]
     Active Substance: ALBUTEROL SULFATE
  3. CETIRIZINE [Concomitant]
     Active Substance: CETIRIZINE HYDROCHLORIDE

REACTIONS (7)
  - Vision blurred [None]
  - Dyspnoea [None]
  - Lip swelling [None]
  - Dizziness [None]
  - Oral pain [None]
  - Eye irritation [None]
  - Eyelid oedema [None]

NARRATIVE: CASE EVENT DATE: 20160121
